FAERS Safety Report 5159931-X (Version None)
Quarter: 2006Q4

REPORT INFORMATION
  Report Type: 
  Country: None (occurrence: None)
  Receive Date: 20061117
  Receipt Date: 20061108
  Transmission Date: 20070319
  Serious: Yes (Life-Threatening, Hospitalization, Other)
  Sender: FDA-Public Use
  Company Number: 2006112750

PATIENT
  Age: 66 Year
  Sex: Female
  Weight: 63.5036 kg

DRUGS (13)
  1. LIPITOR [Suspect]
     Indication: BLOOD CHOLESTEROL INCREASED
     Dosage: 80 MG (80 MG, 1 IN 1 D), ORAL
     Route: 048
     Dates: start: 20020101, end: 20061005
  2. DRUG USED IN DIABETES [Concomitant]
  3. GLYCERYL TRINITRATE [Concomitant]
  4. INSULIN, REGULAR (INSULIN) [Concomitant]
  5. LANTUS [Concomitant]
  6. MICARDIS [Concomitant]
  7. LASIX [Concomitant]
  8. ISOSORBIDE MONONITRATE [Concomitant]
  9. LORAZEPAM [Concomitant]
  10. PRILOSEC [Concomitant]
  11. ACETYLSALICYLIC ACID SRT [Concomitant]
  12. LEXAPRO [Concomitant]
  13. WELLBUTRIN XL [Concomitant]

REACTIONS (10)
  - ACTIVITIES OF DAILY LIVING IMPAIRED [None]
  - ANOREXIA [None]
  - BALANCE DISORDER [None]
  - BLOOD POTASSIUM DECREASED [None]
  - CONDITION AGGRAVATED [None]
  - DEMENTIA ALZHEIMER'S TYPE [None]
  - DRUG INEFFECTIVE [None]
  - DYSARTHRIA [None]
  - PARKINSON'S DISEASE [None]
  - TREMOR [None]
